FAERS Safety Report 5332168-7 (Version None)
Quarter: 2007Q2

REPORT INFORMATION
  Report Type: 
  Country: None (occurrence: None)
  Receive Date: 20070518
  Receipt Date: 20070507
  Transmission Date: 20071010
  Serious: Yes (Hospitalization)
  Sender: FDA-Public Use
  Company Number: 233662K07USA

PATIENT
  Age: 50 Year
  Sex: Female

DRUGS (2)
  1. REBIF [Suspect]
     Indication: MULTIPLE SCLEROSIS
     Dosage: 44 MCG, 3 IN 1 WEEKS, SUBCUTANEOUS
     Route: 058
     Dates: start: 20060512, end: 20070501
  2. CALCIUM (CALCIUM-SANDOZ /00009901/) [Suspect]

REACTIONS (4)
  - BONE DENSITY DECREASED [None]
  - NEPHROLITHIASIS [None]
  - STRESS [None]
  - THERAPY CESSATION [None]
